FAERS Safety Report 8059560-4 (Version None)
Quarter: 2012Q1

REPORT INFORMATION
  Report Type: 
  Country: None (occurrence: None)
  Receive Date: 20120120
  Receipt Date: 20120111
  Transmission Date: 20120608
  Serious: Yes (Hospitalization)
  Sender: FDA-Public Use
  Company Number: FR-SANOFI-AVENTIS-2012SA001921

PATIENT
  Age: 49 Year
  Sex: Male

DRUGS (9)
  1. NOVORAPID [Concomitant]
     Route: 058
  2. LANTUS [Concomitant]
     Route: 058
  3. TARGOCID [Suspect]
     Route: 042
     Dates: start: 20110517, end: 20110605
  4. ATORVASTATIN CALCIUM [Concomitant]
     Route: 048
  5. LOVENOX [Suspect]
     Route: 058
     Dates: start: 20110505, end: 20110601
  6. PIPERACILLIN/TAZOBACTAM [Suspect]
     Route: 042
     Dates: start: 20110517, end: 20110605
  7. ASPIRIN [Concomitant]
     Route: 048
  8. GAVISCON [Concomitant]
     Route: 048
  9. OFLOXACIN [Suspect]
     Route: 048
     Dates: start: 20110517, end: 20110605

REACTIONS (2)
  - SKIN TEST NEGATIVE [None]
  - DRUG RASH WITH EOSINOPHILIA AND SYSTEMIC SYMPTOMS [None]
